FAERS Safety Report 8470984-3 (Version None)
Quarter: 2012Q2

REPORT INFORMATION
  Report Type: 
  Country: None (occurrence: None)
  Receive Date: 20120323
  Receipt Date: 20111222
  Transmission Date: 20120825
  Serious: Yes (Disabling)
  Sender: FDA-Public Use
  Company Number: 163-21880-11082902

PATIENT
  Age: 72 Year
  Sex: Female

DRUGS (2)
  1. REVLIMID [Suspect]
     Indication: MULTIPLE MYELOMA
     Dosage: 25 MG, DAYS 1-21 Q28 DAYS, PO : 15 MG, 1 IN 1 D, PO
     Route: 048
     Dates: start: 20110101, end: 20110930
  2. REVLIMID [Suspect]
     Indication: MULTIPLE MYELOMA
     Dosage: 25 MG, DAYS 1-21 Q28 DAYS, PO : 15 MG, 1 IN 1 D, PO
     Route: 048
     Dates: start: 20100201

REACTIONS (3)
  - MULTIPLE MYELOMA [None]
  - NEOPLASM PROGRESSION [None]
  - BLOOD IMMUNOGLOBULIN G INCREASED [None]
